FAERS Safety Report 17219377 (Version 1)
Quarter: 2019Q4

REPORT INFORMATION
  Report Type: Spontaneous
  Country: US (occurrence: US)
  Receive Date: 20191209
  Receipt Date: 20191209
  Transmission Date: 20200122
  Serious: Yes (Death, Hospitalization, Other)
  Sender: FDA-Public Use
  Company Number: None

PATIENT
  Age: 61 Year
  Sex: Male

DRUGS (1)
  1. OMEPRAZOLE (OMEPRAZOLE 20MG CAP,EC) [Suspect]
     Active Substance: OMEPRAZOLE
     Indication: PROPHYLAXIS
     Dosage: ?          OTHER FREQUENCY:AM;?
     Route: 048
     Dates: start: 20050110, end: 20191015

REACTIONS (18)
  - Post procedural complication [None]
  - Cardiac failure acute [None]
  - Fatigue [None]
  - Arthralgia [None]
  - Pathogen resistance [None]
  - Arthritis bacterial [None]
  - Condition aggravated [None]
  - Eosinophilia [None]
  - Drug reaction with eosinophilia and systemic symptoms [None]
  - Portal vein thrombosis [None]
  - Rash [None]
  - Acute kidney injury [None]
  - Gastrointestinal haemorrhage [None]
  - Dialysis [None]
  - Intestinal obstruction [None]
  - Atrial fibrillation [None]
  - Gout [None]
  - Staphylococcal sepsis [None]

NARRATIVE: CASE EVENT DATE: 20191009
